FAERS Safety Report 17611907 (Version 1)
Quarter: 2020Q2

REPORT INFORMATION
  Report Type: Spontaneous
  Country: DK (occurrence: DK)
  Receive Date: 20200401
  Receipt Date: 20200401
  Transmission Date: 20200713
  Serious: Yes (Disabling)
  Sender: FDA-Public Use
  Company Number: DK-ALLERGAN-2013585US

PATIENT
  Sex: Male

DRUGS (3)
  1. CYCLOGYL [Suspect]
     Active Substance: CYCLOPENTOLATE HYDROCHLORIDE
     Indication: MYDRIASIS
     Dosage: 1 %
     Route: 050
     Dates: start: 20181214
  2. PHENYLEPHRINE [Suspect]
     Active Substance: PHENYLEPHRINE HYDROCHLORIDE
     Indication: MYDRIASIS
     Dosage: UNK
     Route: 050
     Dates: start: 20181214
  3. MYDRIACYL [Suspect]
     Active Substance: TROPICAMIDE
     Indication: MYDRIASIS
     Dosage: UNK
     Route: 050
     Dates: start: 20181214

REACTIONS (7)
  - Coordination abnormal [Not Recovered/Not Resolved]
  - Balance disorder [Not Recovered/Not Resolved]
  - Off label use [Unknown]
  - Glare [Not Recovered/Not Resolved]
  - Pupil fixed [Not Recovered/Not Resolved]
  - Headache [Not Recovered/Not Resolved]
  - Photophobia [Not Recovered/Not Resolved]

NARRATIVE: CASE EVENT DATE: 20181217
